FAERS Safety Report 17021304 (Version 1)
Quarter: 2019Q4

REPORT INFORMATION
  Report Type: Spontaneous
  Country: US (occurrence: US)
  Receive Date: 20191007
  Receipt Date: 20191007
  Transmission Date: 20200122
  Serious: Yes (Hospitalization)
  Sender: FDA-Public Use
  Company Number: None

PATIENT
  Sex: Male

DRUGS (2)
  1. DIAZEPAM GEL [Concomitant]
     Active Substance: DIAZEPAM
  2. VIGABATRIN 5200MG PWD [Suspect]
     Active Substance: VIGABATRIN
     Indication: OCULOCEREBRORENAL SYNDROME
     Dosage: 15 ML QAM + 20 ML BID VIA G TUBE
     Dates: start: 20190726

REACTIONS (4)
  - Central nervous system inflammation [None]
  - Gastrointestinal disorder [None]
  - Urinary tract disorder [None]
  - Seizure [None]
